FAERS Safety Report 5091018-7 (Version None)
Quarter: 2006Q3

REPORT INFORMATION
  Report Type: 
  Country: None (occurrence: None)
  Receive Date: 20060829
  Receipt Date: 20050909
  Transmission Date: 20061208
  Serious: No
  Sender: FDA-Public Use
  Company Number: US-GLAXOSMITHKLINE-A0573595A

PATIENT
  Sex: Female

DRUGS (3)
  1. ZOVIRAX [Suspect]
  2. PREDNISONE TAB [Concomitant]
  3. QUININE SULFATE [Concomitant]

REACTIONS (1)
  - NAUSEA [None]
